FAERS Safety Report 7379936-8 (Version None)
Quarter: 2011Q1

REPORT INFORMATION
  Report Type: 
  Country: None (occurrence: None)
  Receive Date: 20110329
  Receipt Date: 20110315
  Transmission Date: 20110831
  Serious: Yes (Other)
  Sender: FDA-Public Use
  Company Number: PHHY2009BR38217

PATIENT
  Sex: Female

DRUGS (3)
  1. DIOVAN AMLO FIX [Suspect]
     Dosage: 1 DF (160 MG OF VALSARTAN AND 10 MG OF AMLODIPINE)
  2. DIOVAN AMLO FIX [Suspect]
     Dosage: 160/05 MG
  3. DIOVAN AMLO [Suspect]
     Dosage: 160 MG OF VALSARTAN AND 5 MG OF AMLODIPIN

REACTIONS (10)
  - SKIN HYPERTROPHY [None]
  - BLOOD PRESSURE INADEQUATELY CONTROLLED [None]
  - MICTURITION URGENCY [None]
  - NASAL CONGESTION [None]
  - COUGH [None]
  - ERYTHEMA [None]
  - HYPOAESTHESIA [None]
  - SWELLING [None]
  - PAIN IN EXTREMITY [None]
  - SOMNOLENCE [None]
